FAERS Safety Report 7442845-X (Version None)
Quarter: 2011Q2

REPORT INFORMATION
  Report Type: 
  Country: None (occurrence: None)
  Receive Date: 20110428
  Receipt Date: 20110330
  Transmission Date: 20111010
  Serious: No
  Sender: FDA-Public Use
  Company Number: US-BAYER-2011-029647

PATIENT
  Sex: Female
  Weight: 81 kg

DRUGS (4)
  1. TEGRETOL [Concomitant]
     Dosage: UNK
     Route: 048
  2. TOPAMAX [Concomitant]
     Dosage: UNK
     Route: 048
  3. DEPAKOTE [Concomitant]
     Dosage: UNK
     Route: 048
  4. ALEVE (CAPLET) [Suspect]
     Indication: ANALGESIC THERAPY
     Dosage: 1 DF, QD
     Route: 048

REACTIONS (1)
  - RASH [None]
